FAERS Safety Report 8851323 (Version 2)
Quarter: 2013Q1

REPORT INFORMATION
  Report Type: Spontaneous
  Country: US (occurrence: US)
  Receive Date: 20121020
  Receipt Date: 20130128
  Transmission Date: 20140127
  Serious: No
  Sender: FDA-Public Use
  Company Number: US-B.I. PHARMACEUTICALS,INC./RIDGEFIELD-2012-BP-25153BP

PATIENT
  Sex: Female

DRUGS (6)
  1. CATAPRES [Suspect]
     Indication: HYPERTENSION
     Dosage: 0.2 MG
     Route: 048
     Dates: start: 201204
  2. CATAPRES TTS [Suspect]
     Indication: HYPERTENSION
     Dosage: 0.1 MG
     Route: 061
     Dates: start: 201204
  3. PERCOCET [Concomitant]
     Indication: BACK PAIN
     Dosage: 30 MG
     Route: 048
  4. XANAX [Concomitant]
     Indication: ANXIETY
     Dosage: 0.5 MG
     Route: 048
  5. MAGNESIUM TABLETS [Concomitant]
     Indication: CONSTIPATION
     Route: 048
  6. COLACE [Concomitant]
     Indication: CONSTIPATION
     Dosage: 400 MG
     Route: 048

REACTIONS (2)
  - Blood pressure increased [Not Recovered/Not Resolved]
  - Drug ineffective [Unknown]
